FAERS Safety Report 5739697-2 (Version None)
Quarter: 2008Q2

REPORT INFORMATION
  Report Type: 
  Country: None (occurrence: None)
  Receive Date: 20080513
  Receipt Date: 20080425
  Transmission Date: 20081010
  Serious: Yes (Other)
  Sender: FDA-Public Use
  Company Number: S08-SWI-00608-01

PATIENT
  Sex: Female

DRUGS (6)
  1. ESCITALOPRAM [Suspect]
     Indication: ANXIETY
     Dosage: 10 MG QD PO
     Route: 048
     Dates: start: 20080106, end: 20080201
  2. ESCITALOPRAM [Suspect]
     Indication: DEPRESSION
     Dosage: 10 MG QD PO
     Route: 048
     Dates: start: 20080106, end: 20080201
  3. AMITRIPTYLINE HCL [Suspect]
     Indication: HEADACHE
     Dosage: 25 MG QD PO
     Route: 048
     Dates: end: 20080115
  4. REMERON [Suspect]
     Indication: DEPRESSION
     Dosage: 15 MG QD PO
     Route: 048
     Dates: start: 20080116, end: 20080201
  5. METOPROLOL SUCCINATE [Suspect]
     Dosage: 100 MG BID PO
     Route: 048
     Dates: start: 20071101
  6. LORAZEPAM [Suspect]
     Dosage: 1 MG QD PO
     Route: 048

REACTIONS (7)
  - ANXIETY [None]
  - DEPRESSION [None]
  - DRUG INTERACTION [None]
  - HYPERHIDROSIS [None]
  - ILL-DEFINED DISORDER [None]
  - RESTLESSNESS [None]
  - SEROTONIN SYNDROME [None]
